FAERS Safety Report 9308891 (Version 2)
Quarter: 2015Q1

REPORT INFORMATION
  Report Type: Spontaneous
  Country: ES (occurrence: ES)
  Receive Date: 20130524
  Receipt Date: 20150113
  Transmission Date: 20150721
  Serious: Yes (Other)
  Sender: FDA-Public Use
  Company Number: PHHY2013ES051058

PATIENT
  Age: 17 Year
  Sex: Female

DRUGS (2)
  1. RIZATRIPTAN BENZOATE. [Suspect]
     Active Substance: RIZATRIPTAN BENZOATE
     Dosage: 10 MG, UNK
     Route: 065
     Dates: start: 201212
  2. RIZATRIPTAN BENZOATE. [Suspect]
     Active Substance: RIZATRIPTAN BENZOATE
     Indication: MIGRAINE
     Dosage: 10 MG, UNK
     Route: 065
     Dates: start: 201210

REACTIONS (6)
  - Vomiting [Recovering/Resolving]
  - Discomfort [Recovering/Resolving]
  - Choluria [Recovering/Resolving]
  - Drug-induced liver injury [Recovering/Resolving]
  - Abdominal pain upper [Recovering/Resolving]
  - Jaundice [Recovering/Resolving]
